FAERS Safety Report 8033107-0 (Version None)
Quarter: 2012Q1

REPORT INFORMATION
  Report Type: 
  Country: None (occurrence: None)
  Receive Date: 20120110
  Receipt Date: 20120110
  Transmission Date: 20120608
  Serious: Yes (Other)
  Sender: FDA-Public Use
  Company Number: None

PATIENT
  Sex: Female
  Weight: 49.2 kg

DRUGS (5)
  1. NUTROPIN AQ [Suspect]
     Indication: GROWTH HORMONE DEFICIENCY
     Dosage: 1.2MG
     Route: 058
     Dates: start: 20040115, end: 20100131
  2. CYTOMEL [Concomitant]
  3. LEVOTHYROXINE SODIUM [Concomitant]
  4. ORTHO TRI-CYCLEN [Concomitant]
  5. ROCALTROL [Concomitant]

REACTIONS (2)
  - THYROID CANCER [None]
  - METASTASES TO LYMPH NODES [None]
